FAERS Safety Report 14169160 (Version 3)
Quarter: 2018Q1

REPORT INFORMATION
  Report Type: Spontaneous
  Country: US (occurrence: US)
  Receive Date: 20171107
  Receipt Date: 20180307
  Transmission Date: 20180508
  Serious: Yes (Hospitalization)
  Sender: FDA-Public Use
  Company Number: US-ACTELION-A-US2017-161907

PATIENT
  Age: 18 Month
  Sex: Male

DRUGS (2)
  1. REMODULIN [Concomitant]
     Active Substance: TREPROSTINIL
     Dosage: UNK
  2. TRACLEER [Suspect]
     Active Substance: BOSENTAN
     Indication: PULMONARY ARTERIAL HYPERTENSION
     Dosage: 15.625 MG, BID
     Route: 048
     Dates: start: 20170602, end: 20180226

REACTIONS (5)
  - Accident [Unknown]
  - Dyspnoea [Unknown]
  - Respiratory failure [Recovered/Resolved]
  - Tracheostomy malfunction [Recovered/Resolved]
  - Cardiac arrest [Recovered/Resolved]
